FAERS Safety Report 14219841 (Version 1)
Quarter: 2017Q4

REPORT INFORMATION
  Report Type: Report from Study
  Country: BR (occurrence: BR)
  Receive Date: 20171123
  Receipt Date: 20171123
  Transmission Date: 20180321
  Serious: Yes (Other)
  Sender: FDA-Public Use
  Company Number: BR-TAKEDA-2017TUS024567

PATIENT

DRUGS (1)
  1. VORTIOXETINE. [Suspect]
     Active Substance: VORTIOXETINE
     Indication: DEPRESSION
     Dosage: UNK
     Route: 065

REACTIONS (1)
  - Suicidal ideation [Unknown]
